FAERS Safety Report 5148303-X (Version None)
Quarter: 2006Q4

REPORT INFORMATION
  Report Type: 
  Country: None (occurrence: None)
  Receive Date: 20061106
  Receipt Date: 20061027
  Transmission Date: 20070319
  Serious: Yes (Hospitalization)
  Sender: FDA-Public Use
  Company Number: 2006-02031

PATIENT
  Age: 52 Year
  Sex: Male
  Weight: 82 kg

DRUGS (5)
  1. VELCADE [Suspect]
     Indication: MULTIPLE MYELOMA
     Dosage: 2.60 MG, UNK; INTRAVENOUS
     Route: 042
     Dates: start: 20060717, end: 20060722
  2. VALACYCLOVIR [Concomitant]
  3. MORPHINE [Concomitant]
  4. OXYCODONE HCL [Concomitant]
  5. GABAPENTIN [Concomitant]

REACTIONS (3)
  - DYSAESTHESIA [None]
  - MUSCULAR WEAKNESS [None]
  - TREMOR [None]
